FAERS Safety Report 13935499 (Version 1)
Quarter: 2017Q3

REPORT INFORMATION
  Report Type: Spontaneous
  Country: US (occurrence: None)
  Receive Date: 20170904
  Receipt Date: 20170904
  Transmission Date: 20171127
  Serious: Yes (Hospitalization)
  Sender: FDA-Public Use
  Company Number: None

PATIENT
  Age: 51 Year
  Sex: Female

DRUGS (14)
  1. EFFEXOR XR [Concomitant]
     Active Substance: VENLAFAXINE HYDROCHLORIDE
  2. OPSUMIT [Concomitant]
     Active Substance: MACITENTAN
  3. PRILOSEC [Concomitant]
     Active Substance: OMEPRAZOLE MAGNESIUM
  4. PROPRANOTOL [Concomitant]
  5. SILDENAFIL 20MG [Suspect]
     Active Substance: SILDENAFIL
     Indication: PULMONARY HYPERTENSION
     Route: 048
  6. LEFLUNOMIDE. [Concomitant]
     Active Substance: LEFLUNOMIDE
  7. ETODOLAC. [Concomitant]
     Active Substance: ETODOLAC
  8. ORENITRAM [Concomitant]
     Active Substance: TREPROSTINIL
  9. AMLODIPINE [Concomitant]
     Active Substance: AMLODIPINE BESYLATE
  10. MELOXICAM. [Concomitant]
     Active Substance: MELOXICAM
  11. FUROSEMIDE. [Concomitant]
     Active Substance: FUROSEMIDE
  12. LEVOTHYROXINE. [Concomitant]
     Active Substance: LEVOTHYROXINE
  13. LOSARTAN. [Concomitant]
     Active Substance: LOSARTAN
  14. ENBREL [Concomitant]
     Active Substance: ETANERCEPT

REACTIONS (2)
  - General physical condition abnormal [None]
  - Syncope [None]

NARRATIVE: CASE EVENT DATE: 20170815
